FAERS Safety Report 6725163-4 (Version None)
Quarter: 2010Q2

REPORT INFORMATION
  Report Type: 
  Country: None (occurrence: None)
  Receive Date: 20100514
  Receipt Date: 20100505
  Transmission Date: 20101027
  Serious: Yes (Hospitalization)
  Sender: FDA-Public Use
  Company Number: FR-KINGPHARMUSA00001-K201000553

PATIENT
  Age: 66 Year
  Sex: Male

DRUGS (11)
  1. ALTACE [Suspect]
     Indication: HYPERTENSION
     Dosage: 10 MG, QD
     Route: 048
     Dates: start: 20000101
  2. BISOPROLOL FUMARATE [Suspect]
     Indication: HYPERTENSION
     Dosage: 10 MG, QD
     Route: 048
     Dates: end: 20080530
  3. BISOPROLOL FUMARATE [Suspect]
     Dosage: 2.5 MG, BID
     Route: 048
     Dates: start: 20080531
  4. DOXAZOSIN MESYLATE [Suspect]
     Indication: HYPERTENSION
     Dosage: 8 MG, QD
     Route: 048
     Dates: end: 20080530
  5. DOXAZOSIN MESYLATE [Suspect]
     Dosage: 2 MG, QD
     Route: 048
     Dates: start: 20080531
  6. HYDROCHLOROTHIAZIDE [Suspect]
     Indication: HYPERTENSION
     Dosage: 25 MG, QD
     Route: 048
     Dates: start: 20030101
  7. ISDN [Suspect]
     Indication: CORONARY ARTERY DISEASE
     Dosage: 20 MG, BID
     Route: 048
     Dates: start: 20030101, end: 20080531
  8. FELODIPINE [Suspect]
     Dosage: 10 MG, QD
     Route: 048
  9. SIMVASTATIN [Concomitant]
     Dosage: UNK
     Dates: start: 20030101
  10. METFORMIN HYDROCHLORIDE [Concomitant]
  11. ACETYLSALICYLIC ACID [Concomitant]
     Dosage: UNK
     Dates: start: 20030101

REACTIONS (6)
  - DEHYDRATION [None]
  - DRUG INTERACTION [None]
  - FEBRILE INFECTION [None]
  - FEELING ABNORMAL [None]
  - HYPOTENSION [None]
  - SYNCOPE [None]
